FAERS Safety Report 8600760-X (Version None)
Quarter: 2012Q3

REPORT INFORMATION
  Report Type: 
  Country: None (occurrence: None)
  Receive Date: 20120817
  Receipt Date: 20120809
  Transmission Date: 20120928
  Serious: Yes (Other)
  Sender: FDA-Public Use
  Company Number: JP-B.I. PHARMACEUTICALS,INC./RIDGEFIELD-2008-BP-16441NB

PATIENT
  Age: 32 Year
  Sex: Male
  Weight: 57 kg

DRUGS (12)
  1. MICARDIS [Suspect]
     Dosage: 40 MG
     Route: 048
     Dates: start: 20070624, end: 20070801
  2. PRAVASTATIN [Concomitant]
     Dosage: 10 MG
     Route: 048
     Dates: start: 20070829
  3. PREDNISOLONE [Suspect]
     Indication: LUPUS NEPHRITIS
     Dosage: 50 MG
     Route: 048
     Dates: start: 20070531
  4. MICARDIS [Suspect]
     Dosage: 80 MG
     Route: 048
     Dates: start: 20070802
  5. ZANTAC [Concomitant]
     Indication: PROPHYLAXIS
     Dosage: 300 MG
     Route: 048
  6. ALFAROL [Concomitant]
     Indication: PROPHYLAXIS
     Dosage: 0.5 MCG
     Route: 048
  7. PROGRAF [Suspect]
     Indication: LUPUS NEPHRITIS
     Dosage: 1.5 MG
     Route: 048
     Dates: start: 20070531, end: 20070611
  8. PROGRAF [Suspect]
     Dosage: 2 MG
     Route: 048
     Dates: start: 20070612
  9. BONALON 5MG [Concomitant]
     Indication: PROPHYLAXIS
     Route: 048
     Dates: end: 20120321
  10. MICARDIS [Suspect]
     Indication: HYPERTENSION
     Dosage: 20 MG
     Route: 048
     Dates: start: 20070608, end: 20070623
  11. WARFARIN SODIUM [Concomitant]
     Dosage: 2 MG
     Route: 048
  12. VITAMIN B12 [Concomitant]
     Dosage: 1500 MCG
     Route: 048
     Dates: start: 20070616, end: 20080116

REACTIONS (8)
  - HERPES ZOSTER [None]
  - WHITE BLOOD CELL COUNT INCREASED [None]
  - RENAL IMPAIRMENT [None]
  - BRONCHITIS [None]
  - INFLUENZA [None]
  - UPPER RESPIRATORY TRACT INFLAMMATION [None]
  - ORAL CANDIDIASIS [None]
  - NEOPLASM SKIN [None]
